FAERS Safety Report 6809586-0 (Version None)
Quarter: 2010Q2

REPORT INFORMATION
  Report Type: 
  Country: None (occurrence: None)
  Receive Date: 20100630
  Receipt Date: 20100624
  Transmission Date: 20101027
  Serious: Yes (Death)
  Sender: FDA-Public Use
  Company Number: PHHY2010US41833

PATIENT
  Sex: Male

DRUGS (1)
  1. EXJADE [Suspect]
     Dosage: 500 MG, UNK
     Route: 048
     Dates: start: 20081125

REACTIONS (2)
  - MYELODYSPLASTIC SYNDROME [None]
  - RENAL FAILURE [None]
